FAERS Safety Report 7988036-5 (Version None)
Quarter: 2011Q4

REPORT INFORMATION
  Report Type: 
  Country: None (occurrence: None)
  Receive Date: 20111216
  Receipt Date: 20101221
  Transmission Date: 20120403
  Serious: No
  Sender: FDA-Public Use
  Company Number: US-BRISTOL-MYERS SQUIBB COMPANY-15418106

PATIENT
  Age: 28 Year
  Sex: Female

DRUGS (4)
  1. ABILIFY [Suspect]
     Indication: MANIA
     Route: 048
     Dates: start: 20080401
  2. ZYPREXA [Concomitant]
     Route: 048
  3. ABILIFY [Suspect]
     Indication: BIPOLAR DISORDER
     Route: 048
     Dates: start: 20080401
  4. CYPROHEPTADINE HCL [Concomitant]

REACTIONS (1)
  - GASTRITIS [None]
